FAERS Safety Report 12786474 (Version 1)
Quarter: 2016Q3

REPORT INFORMATION
  Report Type: Spontaneous
  Country: US (occurrence: US)
  Receive Date: 20160927
  Receipt Date: 20160927
  Transmission Date: 20161109
  Serious: No
  Sender: FDA-Public Use
  Company Number: US-FRI-1000084689

PATIENT
  Sex: Female

DRUGS (8)
  1. LINZESS [Suspect]
     Active Substance: LINACLOTIDE
     Dosage: UNK
  2. LINZESS [Suspect]
     Active Substance: LINACLOTIDE
     Dosage: UNK
  3. SINGULAIR [Suspect]
     Active Substance: MONTELUKAST SODIUM
     Dosage: UNK
  4. TROSPIUM [Suspect]
     Active Substance: TROSPIUM
     Dosage: UNK
  5. ACYCLOVIR. [Suspect]
     Active Substance: ACYCLOVIR
     Dosage: UNK
  6. STOOL SOFTENER [Concomitant]
     Active Substance: DOCUSATE CALCIUM
     Dosage: UNK
  7. LINZESS [Suspect]
     Active Substance: LINACLOTIDE
     Dosage: UNK
  8. LAXATIVE COLACE [Concomitant]
     Dosage: UNK

REACTIONS (6)
  - Gastrointestinal motility disorder [Unknown]
  - Drug effect decreased [Unknown]
  - Diarrhoea [Unknown]
  - Constipation [Unknown]
  - Intentional product misuse [Unknown]
  - Drug interaction [Unknown]
